FAERS Safety Report 8045588-7 (Version None)
Quarter: 2012Q1

REPORT INFORMATION
  Report Type: 
  Country: None (occurrence: None)
  Receive Date: 20120113
  Receipt Date: 20120104
  Transmission Date: 20120608
  Serious: Yes (Other)
  Sender: FDA-Public Use
  Company Number: GB-MERCK-1112GBR00010

PATIENT
  Age: 35 Year
  Sex: Female
  Weight: 57 kg

DRUGS (2)
  1. FOLIC ACID [Concomitant]
     Route: 065
  2. PROSCAR [Suspect]
     Route: 048

REACTIONS (4)
  - NO ADVERSE EVENT [None]
  - ACCIDENTAL EXPOSURE [None]
  - MATERNAL EXPOSURE DURING PREGNANCY [None]
  - WRONG TECHNIQUE IN DRUG USAGE PROCESS [None]
